FAERS Safety Report 20652356 (Version 2)
Quarter: 2022Q3

REPORT INFORMATION
  Report Type: Spontaneous
  Country: IE (occurrence: IE)
  Receive Date: 20220330
  Receipt Date: 20220815
  Transmission Date: 20221027
  Serious: Yes (Life-Threatening, Other)
  Sender: FDA-Public Use
  Company Number: None

PATIENT
  Age: 14 Year
  Sex: Female

DRUGS (16)
  1. CLONAZEPAM [Suspect]
     Active Substance: CLONAZEPAM
     Indication: Anxiety
     Dosage: 0.5 MG,BID (EVERY 12 HOUR)
     Route: 048
     Dates: start: 20200620, end: 20200627
  2. FLUOXETINE [Suspect]
     Active Substance: FLUOXETINE HYDROCHLORIDE
     Indication: Anxiety
     Dosage: THE DOSE RANGE WAS 10 MG TO 40 MG PER DAY
     Route: 048
     Dates: start: 201911, end: 202103
  3. FLUOXETINE [Suspect]
     Active Substance: FLUOXETINE HYDROCHLORIDE
     Indication: Anxiety
     Dosage: THE DOSE RANGE WAS 10 MG TO 40 MG PER DAY
     Route: 048
     Dates: start: 201911, end: 202103
  4. ARIPIPRAZOLE [Concomitant]
     Active Substance: ARIPIPRAZOLE
     Dosage: THE DOSE RANGE WAS 2.5 MG TO 7.5 MG PER DAY?DAILY DOSE: 2.5 MILLIGRAM
     Route: 048
     Dates: start: 20190719, end: 20200131
  5. ARIPIPRAZOLE [Concomitant]
     Active Substance: ARIPIPRAZOLE
     Dosage: THE DOSE RANGE WAS 2.5 MG TO 7.5 MG PER DAY?DAILY DOSE: 7.5 MILLIGRAM
     Route: 048
     Dates: start: 20190719, end: 20200131
  6. CONCERTA [Concomitant]
     Active Substance: METHYLPHENIDATE HYDROCHLORIDE
     Dosage: 18 MG, DAILY (IN THE MORNING)
     Dates: start: 20200124
  7. CONCERTA [Concomitant]
     Active Substance: METHYLPHENIDATE HYDROCHLORIDE
     Dosage: 36 MG, DAILY
     Dates: start: 20200228
  8. CONCERTA [Concomitant]
     Active Substance: METHYLPHENIDATE HYDROCHLORIDE
     Dosage: 36 MG, DAILY (IN THE MORNING)
     Dates: start: 20200602
  9. CONCERTA [Concomitant]
     Active Substance: METHYLPHENIDATE HYDROCHLORIDE
     Dosage: 27 MG, DAILY (IN THE MORNING)
     Dates: start: 20200616
  10. MELATONIN [Concomitant]
     Active Substance: MELATONIN
     Dosage: 2 MG, DAILY (AT NIGHT)
     Route: 048
     Dates: start: 20191217
  11. Ponstan/Mefac [Concomitant]
     Dosage: UNK,
     Dates: start: 20200114
  12. ALTAVITA D3 [Concomitant]
     Dosage: 25000 IU, EVERY TWO WEEKS
     Dates: start: 20191204
  13. ALTAVITA D3 [Concomitant]
     Dosage: 25000 IU, MONTHLY
     Dates: start: 20200131
  14. ALTAVITA D3 [Concomitant]
     Dosage: 25000 IU, EVERY 2 WEEK
     Dates: start: 20200224
  15. DIAZEPAM [Concomitant]
     Active Substance: DIAZEPAM
     Dosage: THE DOSE RANGE WAS 2.5 TO 6 MG PER DAY.?DAILY DOSE: 2.5 MILLIGRAM
     Dates: start: 201909, end: 202001
  16. DIAZEPAM [Concomitant]
     Active Substance: DIAZEPAM
     Dosage: THE DOSE RANGE WAS 2.5 TO 6 MG PER DAY.?DAILY DOSE: 6 MILLIGRAM
     Dates: start: 201909, end: 202001

REACTIONS (3)
  - Intentional self-injury [Recovered/Resolved]
  - Judgement impaired [Recovered/Resolved]
  - Prescription drug used without a prescription [Recovered/Resolved]

NARRATIVE: CASE EVENT DATE: 20200620
